FAERS Safety Report 5290838-3 (Version None)
Quarter: 2007Q2

REPORT INFORMATION
  Report Type: 
  Country: None (occurrence: None)
  Receive Date: 20070409
  Receipt Date: 20070329
  Transmission Date: 20071010
  Serious: Yes (Death, Other)
  Sender: FDA-Public Use
  Company Number: JP-MERCK-0703USA04511

PATIENT
  Age: 0 Day
  Weight: 1 kg

DRUGS (4)
  1. HYDROCORTONE INJECTION [Suspect]
     Indication: BLOOD PRESSURE DECREASED
     Route: 042
  2. HYDROCORTONE INJECTION [Suspect]
     Indication: URINE OUTPUT DECREASED
     Route: 042
  3. INDOCIN [Suspect]
     Route: 065
  4. AMIKACINA [Suspect]
     Indication: SEPSIS
     Route: 042

REACTIONS (9)
  - BLOOD PRESSURE DECREASED [None]
  - BRADYCARDIA [None]
  - DISSEMINATED INTRAVASCULAR COAGULATION [None]
  - ELECTROCARDIOGRAM QRS COMPLEX PROLONGED [None]
  - HAEMORRHAGE INTRACRANIAL [None]
  - HYPERKALAEMIA [None]
  - METHICILLIN-RESISTANT STAPHYLOCOCCAL AUREUS TEST POSITIVE [None]
  - NECROTISING FASCIITIS [None]
  - SEPSIS [None]
